FAERS Safety Report 4924204-4 (Version None)
Quarter: 2006Q1

REPORT INFORMATION
  Report Type: 
  Country: None (occurrence: None)
  Receive Date: 20060227
  Receipt Date: 20051208
  Transmission Date: 20060701
  Serious: Yes (Other)
  Sender: FDA-Public Use
  Company Number: US-GLAXOSMITHKLINE-A0585681A

PATIENT
  Age: 24 Year
  Sex: Female
  Weight: 63.6 kg

DRUGS (2)
  1. WELLBUTRIN [Suspect]
     Indication: DEPRESSION
     Dosage: 150MG TWICE PER DAY
     Route: 048
     Dates: start: 20051028, end: 20051110
  2. METHYLPHENIDATE SR [Concomitant]
     Indication: ATTENTION DEFICIT/HYPERACTIVITY DISORDER
     Dosage: 20MG THREE TIMES PER DAY
     Route: 048
     Dates: start: 20010101

REACTIONS (1)
  - URINARY INCONTINENCE [None]
